FAERS Safety Report 6456599-7 (Version None)
Quarter: 2009Q4

REPORT INFORMATION
  Report Type: 
  Country: None (occurrence: None)
  Receive Date: 20091119
  Receipt Date: 20091109
  Transmission Date: 20100525
  Serious: Yes (Disabling, Other)
  Sender: FDA-Public Use
  Company Number: 1000010197

PATIENT
  Age: 59 Year
  Sex: Male
  Weight: 76 kg

DRUGS (12)
  1. CITALOPRAM HYDROBROMIDE [Suspect]
     Indication: ANTIDEPRESSANT THERAPY
     Dosage: 20 MG (20 MG,),ORAL
     Route: 048
  2. CITALOPRAM HYDROBROMIDE [Suspect]
     Indication: ANTIDEPRESSANT THERAPY
     Dosage: 20 MG (20 MG),ORAL
     Route: 048
  3. ASPIRIN [Concomitant]
  4. ATENOLOL [Concomitant]
  5. BETNOVATE [Concomitant]
  6. COAL TAR EXTRACT [Concomitant]
  7. DOVONEX [Concomitant]
  8. EXOREX [Concomitant]
  9. FUROSEMIDE [Concomitant]
  10. LOSARTAN [Concomitant]
  11. SIMVASTATIN [Concomitant]
  12. XAMIOL [Concomitant]

REACTIONS (1)
  - DEAFNESS [None]
